FAERS Safety Report 6190813-0 (Version None)
Quarter: 2009Q2

REPORT INFORMATION
  Report Type: 
  Country: None (occurrence: None)
  Receive Date: 20090514
  Receipt Date: 20090507
  Transmission Date: 20091009
  Serious: Yes (Death, Other)
  Sender: FDA-Public Use
  Company Number: PHHY2009DE17876

PATIENT
  Age: 47 Year
  Sex: Female

DRUGS (3)
  1. IMATINIB MESYLATE [Suspect]
     Indication: CHRONIC MYELOID LEUKAEMIA
     Dosage: 400 MG/DAY
  2. IMATINIB MESYLATE [Suspect]
     Dosage: 300 MG/DAY
  3. CYTARABINE [Concomitant]

REACTIONS (12)
  - BLAST CELLS PRESENT [None]
  - DEATH [None]
  - DIZZINESS [None]
  - DRUG RESISTANCE [None]
  - GRAFT VERSUS HOST DISEASE [None]
  - LEUKAEMIC INFILTRATION EXTRAMEDULLARY [None]
  - LEUKOPENIA [None]
  - MALIGNANT NEOPLASM PROGRESSION [None]
  - PLEURAL EFFUSION [None]
  - RASH GENERALISED [None]
  - SURGERY [None]
  - THROMBOCYTOPENIA [None]
